FAERS Safety Report 6831831-6 (Version None)
Quarter: 2010Q3

REPORT INFORMATION
  Report Type: 
  Country: None (occurrence: None)
  Receive Date: 20100712
  Receipt Date: 20100630
  Transmission Date: 20110219
  Serious: Yes (Other)
  Sender: FDA-Public Use
  Company Number: NL-BAYER-201031143GPV

PATIENT
  Age: 46 Year
  Sex: Male

DRUGS (3)
  1. RIFAMPICIN [Suspect]
     Indication: MYCOBACTERIUM ULCERANS INFECTION
     Dosage: TOTAL DAILY DOSE: 600 MG
  2. CIPROFLOXACIN [Suspect]
     Indication: MYCOBACTERIUM ULCERANS INFECTION
     Dosage: TOTAL DAILY DOSE: 1000 MG
  3. CEFAZOLIN [Suspect]
     Indication: MYCOBACTERIUM ULCERANS INFECTION
     Route: 042

REACTIONS (1)
  - PARADOXICAL DRUG REACTION [None]
